FAERS Safety Report 20529734 (Version 4)
Quarter: 2022Q1

REPORT INFORMATION
  Report Type: Report from Study
  Country: GB (occurrence: GB)
  Receive Date: 20220301
  Receipt Date: 20220331
  Transmission Date: 20220423
  Serious: Yes (Hospitalization, Other)
  Sender: FDA-Public Use
  Company Number: GB-CELLTRION INC.-2022GB002216

PATIENT

DRUGS (93)
  1. TRASTUZUMAB [Suspect]
     Active Substance: TRASTUZUMAB
     Indication: Breast cancer metastatic
     Dosage: 567 MG, QD (LOADING DOSE); IN TOTAL
     Route: 041
     Dates: start: 20150616, end: 20150616
  2. TRASTUZUMAB [Suspect]
     Active Substance: TRASTUZUMAB
     Indication: Breast cancer metastatic
     Dosage: 567 MG (LOADING DOSE) (TOTAL)
     Route: 041
     Dates: start: 20150616, end: 20150616
  3. TRASTUZUMAB [Suspect]
     Active Substance: TRASTUZUMAB
     Dosage: 420 MG, Q3W
     Route: 042
     Dates: start: 20150709, end: 20150709
  4. TRASTUZUMAB [Suspect]
     Active Substance: TRASTUZUMAB
     Dosage: 420 MG, TIW (MAINTAINANCE DOSE)
     Route: 042
     Dates: start: 20150709, end: 20150709
  5. TRASTUZUMAB [Suspect]
     Active Substance: TRASTUZUMAB
     Dosage: 420 MG, Q3W (MAINTENANCE DOSE)
     Route: 042
     Dates: start: 20150709
  6. TRASTUZUMAB [Suspect]
     Active Substance: TRASTUZUMAB
     Dosage: 1260 MG, 1/WEEK (420 MILLIGRAM)
     Route: 041
     Dates: start: 20150709, end: 20150709
  7. TRASTUZUMAB [Suspect]
     Active Substance: TRASTUZUMAB
     Dosage: 1260 MG, 1/WEEK (420 MILLIGRAM)
     Route: 041
     Dates: start: 20150609
  8. TRASTUZUMAB [Suspect]
     Active Substance: TRASTUZUMAB
     Dosage: 356
     Route: 065
  9. TRASTUZUMAB [Suspect]
     Active Substance: TRASTUZUMAB
     Dosage: LOADING DOSE. RECEIVED MAINTAINANCE DOSE 420 MG ON 09-JUL-2015
     Route: 065
     Dates: start: 20150709
  10. TRASTUZUMAB [Suspect]
     Active Substance: TRASTUZUMAB
     Dosage: LOADING DOSE
     Route: 042
     Dates: start: 20150616, end: 20150616
  11. TRASTUZUMAB [Suspect]
     Active Substance: TRASTUZUMAB
     Dosage: LOADING DOSE
     Route: 042
     Dates: start: 20150616, end: 20150616
  12. BENZYDAMINE HYDROCHLORIDE [Suspect]
     Active Substance: BENZYDAMINE HYDROCHLORIDE
     Indication: Mucosal inflammation
     Dosage: 15 ML/CM3, LIQUID MOUTHWASH; ;
     Route: 048
  13. BENZYDAMINE HYDROCHLORIDE [Suspect]
     Active Substance: BENZYDAMINE HYDROCHLORIDE
     Dosage: LIQUID MOUTHWASH 15 ML/CM3
     Route: 048
  14. DOCETAXEL [Suspect]
     Active Substance: DOCETAXEL
     Indication: Breast cancer metastatic
     Dosage: 130 MG, Q3W
     Route: 042
     Dates: start: 20150616, end: 20150616
  15. DOCETAXEL [Suspect]
     Active Substance: DOCETAXEL
     Dosage: 130 MG;
     Route: 042
     Dates: start: 20150616, end: 20150616
  16. DOCETAXEL [Suspect]
     Active Substance: DOCETAXEL
     Dosage: 130 MG, Q3W
     Route: 042
     Dates: start: 20150616, end: 20150709
  17. DOCETAXEL [Suspect]
     Active Substance: DOCETAXEL
     Dosage: 130 MG, QOW, 130 MG, BIW (130 MG, Q3W)
     Route: 042
     Dates: start: 20150709, end: 20150709
  18. DOCETAXEL [Suspect]
     Active Substance: DOCETAXEL
     Dosage: 260 MG, Q3W
     Route: 042
  19. DOCETAXEL [Suspect]
     Active Substance: DOCETAXEL
     Dosage: 390 MG, 1/WEEK (130 MILLIGRAM)
     Route: 041
     Dates: start: 20150709, end: 20150709
  20. DOCETAXEL [Suspect]
     Active Substance: DOCETAXEL
     Dosage: 260 MG, 1/WEEK (130 MILLIGRAM)
     Route: 041
     Dates: start: 20150616, end: 20150709
  21. DOCETAXEL [Suspect]
     Active Substance: DOCETAXEL
     Dosage: UNK, 1/WEEK
     Route: 041
     Dates: start: 20150709, end: 20150709
  22. DOCETAXEL [Suspect]
     Active Substance: DOCETAXEL
     Dosage: PHARMACEUTICAL FORM: 16
     Route: 042
  23. DOCETAXEL [Suspect]
     Active Substance: DOCETAXEL
     Dosage: 130 MG, BIW (130 MG, Q3W)
     Route: 042
     Dates: start: 20150709, end: 20150709
  24. IMODIUM [Suspect]
     Active Substance: LOPERAMIDE HYDROCHLORIDE
     Indication: Diarrhoea
     Dosage: 2 MG, AS NECESSARY
     Route: 048
  25. LOPERAMIDE [Suspect]
     Active Substance: LOPERAMIDE
     Indication: Diarrhoea
     Dosage: 2 MG, PRN; AS NECESSARY
     Route: 048
  26. PACLITAXEL [Suspect]
     Active Substance: PACLITAXEL
     Indication: Breast cancer metastatic
     Dosage: 420 MG, Q3W
     Route: 042
     Dates: start: 20150609, end: 20150609
  27. PACLITAXEL [Suspect]
     Active Substance: PACLITAXEL
     Dosage: 420 MG, Q3W
     Route: 042
     Dates: start: 20150609, end: 20150609
  28. PACLITAXEL [Suspect]
     Active Substance: PACLITAXEL
     Dosage: 567 MG, 1X; IN TOTAL
     Route: 041
     Dates: start: 20150616, end: 20150616
  29. PACLITAXEL [Suspect]
     Active Substance: PACLITAXEL
     Dosage: 340 MG, Q3W
     Route: 042
     Dates: start: 20150609, end: 20150609
  30. PACLITAXEL [Suspect]
     Active Substance: PACLITAXEL
     Dosage: 340 MG,Q3W
     Route: 042
     Dates: start: 20150709, end: 20150709
  31. PACLITAXEL [Suspect]
     Active Substance: PACLITAXEL
     Dosage: 340 MG,Q3W
     Route: 042
     Dates: start: 20150709, end: 20150709
  32. PACLITAXEL [Suspect]
     Active Substance: PACLITAXEL
     Dosage: 450 MG, Q3W
     Route: 042
     Dates: start: 20150730, end: 20150820
  33. PACLITAXEL [Suspect]
     Active Substance: PACLITAXEL
     Dosage: 1350 MG, Q3W, 450 MG, QW3 (LOADING DOSE)
     Route: 042
     Dates: start: 20150730, end: 20150730
  34. PACLITAXEL [Suspect]
     Active Substance: PACLITAXEL
     Dosage: 450 MG, BIW (450 MG, Q3W)
     Route: 042
     Dates: start: 20150730, end: 20150730
  35. PACLITAXEL [Suspect]
     Active Substance: PACLITAXEL
     Dosage: 450 MG, QW3 (LOADING DOSE)
     Route: 042
     Dates: start: 20150730, end: 20150730
  36. PACLITAXEL [Suspect]
     Active Substance: PACLITAXEL
     Dosage: 450 MG,3 (450 MG)
     Route: 042
     Dates: start: 20150730, end: 20150730
  37. PACLITAXEL [Suspect]
     Active Substance: PACLITAXEL
     Dosage: 340 MG,Q3W
     Route: 042
     Dates: start: 20150730, end: 20150730
  38. PACLITAXEL [Suspect]
     Active Substance: PACLITAXEL
     Dosage: 340 MG,Q3W (LOADING DOSE)
     Route: 042
     Dates: start: 20150820, end: 20150820
  39. PACLITAXEL [Suspect]
     Active Substance: PACLITAXEL
     Dosage: 450 MG, Q3W
     Route: 042
     Dates: start: 20150820, end: 20150820
  40. PACLITAXEL [Suspect]
     Active Substance: PACLITAXEL
     Dosage: LOADING DOSE (450 MG)
     Route: 042
     Dates: start: 20150820, end: 20150820
  41. PACLITAXEL [Suspect]
     Active Substance: PACLITAXEL
     Dosage: 340 MG,Q3W
     Route: 042
     Dates: start: 20150910, end: 20151022
  42. PACLITAXEL [Suspect]
     Active Substance: PACLITAXEL
     Dosage: 340 MG, Q3W
     Route: 042
     Dates: start: 20150910, end: 20150910
  43. PACLITAXEL [Suspect]
     Active Substance: PACLITAXEL
     Dosage: 340 MG, Q3W
     Route: 042
     Dates: start: 20151022, end: 20151022
  44. PACLITAXEL [Suspect]
     Active Substance: PACLITAXEL
     Dosage: LOADING DOSE
     Route: 042
     Dates: start: 20150730, end: 20150820
  45. PACLITAXEL [Suspect]
     Active Substance: PACLITAXEL
     Dosage: 567 MG, 3/WEEK
     Route: 041
     Dates: start: 20150616
  46. PACLITAXEL [Suspect]
     Active Substance: PACLITAXEL
     Dosage: 340 MG, 3/WEEK
     Route: 042
     Dates: start: 20151022, end: 20151022
  47. PACLITAXEL [Suspect]
     Active Substance: PACLITAXEL
     Dosage: 450 MG, 3/WEEK
     Route: 042
     Dates: start: 20150820, end: 20150820
  48. PACLITAXEL [Suspect]
     Active Substance: PACLITAXEL
     Dosage: LOADING DOSE 450 MG FROM 30-JUL-2015 TO 20-AUG-2015 CUMULATIVE:857.1429 MG
     Route: 042
     Dates: start: 20150910, end: 20151022
  49. PACLITAXEL [Suspect]
     Active Substance: PACLITAXEL
     Dosage: 340 MG, 3/WEEK
     Route: 042
     Dates: start: 20150820, end: 20150820
  50. PACLITAXEL [Suspect]
     Active Substance: PACLITAXEL
     Dosage: 450 MG,Q3W
     Route: 042
     Dates: start: 20150730, end: 20150730
  51. PERTUZUMAB [Suspect]
     Active Substance: PERTUZUMAB
     Indication: Breast cancer metastatic
     Dosage: 840 MG, TOTAL; IN TOTAL
     Route: 042
     Dates: start: 20150615, end: 20150615
  52. PERTUZUMAB [Suspect]
     Active Substance: PERTUZUMAB
     Dosage: 840 MG, Q3W
     Route: 042
     Dates: start: 20150615, end: 20150615
  53. PERTUZUMAB [Suspect]
     Active Substance: PERTUZUMAB
     Dosage: 567 MG (LOADING DOSE) (TOTAL)
     Route: 041
     Dates: start: 20150616, end: 20150616
  54. PERTUZUMAB [Suspect]
     Active Substance: PERTUZUMAB
     Dosage: 567 MG, TOTAL; IN TOTAL
     Route: 041
     Dates: start: 20150616
  55. PERTUZUMAB [Suspect]
     Active Substance: PERTUZUMAB
     Dosage: 420 MG, QOW
     Route: 042
     Dates: start: 20150709
  56. PERTUZUMAB [Suspect]
     Active Substance: PERTUZUMAB
     Dosage: 420 MG, Q3W
     Route: 042
     Dates: start: 20150709, end: 20150709
  57. PERTUZUMAB [Suspect]
     Active Substance: PERTUZUMAB
     Dosage: MAINTAINACE DOSE
     Route: 042
     Dates: start: 20150709, end: 20150709
  58. PERTUZUMAB [Suspect]
     Active Substance: PERTUZUMAB
     Dosage: 420 MG, Q3W (MAINTAINANCE DOSE)
     Route: 042
     Dates: start: 20150709
  59. PERTUZUMAB [Suspect]
     Active Substance: PERTUZUMAB
     Dosage: 840 MG, 1/WEEK (420 MILLIGRAM)
     Route: 041
     Dates: start: 20150615, end: 20150615
  60. PERTUZUMAB [Suspect]
     Active Substance: PERTUZUMAB
     Dosage: 420 MG, 1/WEEK
     Route: 041
     Dates: start: 20150709, end: 20150709
  61. PERTUZUMAB [Suspect]
     Active Substance: PERTUZUMAB
     Dosage: 10 MG, QD
     Route: 041
     Dates: start: 20150907, end: 20150907
  62. PERTUZUMAB [Suspect]
     Active Substance: PERTUZUMAB
     Dosage: 567 MG, 1/WEEK
     Route: 041
     Dates: start: 20150616, end: 20150616
  63. PERTUZUMAB [Suspect]
     Active Substance: PERTUZUMAB
     Dosage: MAINTAINACE DOSE. ALSO RECEIVED 840 MG FROM 15-JUN-2015 TO 15-JUN-2015 1 DAYS
     Route: 042
     Dates: start: 20150709
  64. PERTUZUMAB [Suspect]
     Active Substance: PERTUZUMAB
     Dosage: LOADING DOSE
     Route: 042
     Dates: start: 20150615, end: 20150615
  65. HERCEPTIN [Suspect]
     Active Substance: TRASTUZUMAB
     Indication: Breast cancer metastatic
     Dosage: 567 MG, QD
     Route: 042
     Dates: start: 20150616, end: 20150616
  66. HERCEPTIN [Suspect]
     Active Substance: TRASTUZUMAB
     Dosage: 420 MG, Q3W
     Route: 042
     Dates: start: 20150709, end: 20150709
  67. HERCEPTIN [Suspect]
     Active Substance: TRASTUZUMAB
     Dosage: 420 MG, Q3W (MAINTAINANCE DOSE)
     Route: 042
     Dates: start: 20150709
  68. HERCEPTIN [Suspect]
     Active Substance: TRASTUZUMAB
     Dosage: 420 MG, BIW (420 MG, Q3W)
     Route: 042
     Dates: start: 20150709, end: 20150709
  69. ABRAXANE [Suspect]
     Active Substance: PACLITAXEL
     Indication: Breast cancer metastatic
     Dosage: 390 MG, 1/WEEK (130 MILLIGRAM; PHARMACEUTICAL DOSE FORM: 120)
     Route: 041
     Dates: start: 20160709, end: 20160709
  70. ABRAXANE [Suspect]
     Active Substance: PACLITAXEL
     Dosage: 1020 MG, 1/WEEK (340 MILLIGRAM; PHARMACEUTICAL DOSE FORM: 124)
     Route: 041
     Dates: start: 20150730, end: 20150820
  71. ABRAXANE [Suspect]
     Active Substance: PACLITAXEL
     Dosage: 1020 MG, 1/WEEK (340 MILLIGRAM; PHARMACEUTICAL DOSE FORM: 120)
     Route: 041
     Dates: start: 20150820, end: 20150820
  72. ABRAXANE [Suspect]
     Active Substance: PACLITAXEL
     Dosage: 1020 MG, 1/WEEK (340 MILLIGRAM; PHARMACEUTICAL DOSE FORM: 124)
     Route: 041
     Dates: start: 20150730, end: 20150730
  73. ABRAXANE [Suspect]
     Active Substance: PACLITAXEL
     Dosage: 2520 MG, 1/WEEK (840 MILLIGRAM; PHARMACEUTICAL DOSE FORM: 124)
     Route: 041
     Dates: start: 20150615, end: 20150615
  74. ABRAXANE [Suspect]
     Active Substance: PACLITAXEL
     Dosage: 1020 MG, 1/WEEK (340 MILLIGRAM; PHARMACEUTICAL DOSE FORM: 120)
     Route: 041
     Dates: start: 20151022, end: 20151022
  75. ABRAXANE [Suspect]
     Active Substance: PACLITAXEL
     Dosage: 1020 MG, 1/WEEK (340 MILLIGRAM; PHARMACEUTICAL DOSE FORM: 120)
     Route: 041
     Dates: start: 20150910, end: 20150910
  76. ABRAXANE [Suspect]
     Active Substance: PACLITAXEL
     Dosage: 1701 MG, 1/WEEK (567 MILLIGRAM; PHARMACEUTICAL DOSE FORM: 120)
     Route: 041
     Dates: start: 20150616, end: 20150616
  77. CHLORPHENIRAMINE MALEATE [Concomitant]
     Active Substance: CHLORPHENIRAMINE MALEATE
     Indication: Product used for unknown indication
     Dosage: 10 MG,UNK
     Route: 042
     Dates: start: 20150709, end: 20150709
  78. CHLORPHENIRAMINE MALEATE [Concomitant]
     Active Substance: CHLORPHENIRAMINE MALEATE
     Dosage: 10 MG, QD (PHARMACEUTICAL DOSE FORM: 120)
     Route: 041
     Dates: start: 20150709, end: 20150709
  79. AMOXICILLIN\CLAVULANATE POTASSIUM [Concomitant]
     Active Substance: AMOXICILLIN\CLAVULANATE POTASSIUM
     Indication: Cough
     Dosage: UNK, QD (PHARMACEUTICAL DOSE FORM: 245)
     Route: 048
     Dates: start: 20180110, end: 20180117
  80. COCODAMOL [Concomitant]
     Active Substance: ACETAMINOPHEN\CODEINE PHOSPHATE
     Indication: Product used for unknown indication
     Dosage: 2000 MG, QD (PHARMACEUTICAL DOSE FORM: 245)
     Route: 048
  81. COCODAMOL [Concomitant]
     Active Substance: ACETAMINOPHEN\CODEINE PHOSPHATE
     Dosage: 500 MG, QD (PHARMACEUTICAL DOSE FORM: 245)
     Route: 048
  82. DOMPERIDONE [Concomitant]
     Active Substance: DOMPERIDONE
     Indication: Product used for unknown indication
     Dosage: 10 MG, QD (30 MILLIGRAM, PHARMACEUTICAL DOSE FORM: 245)
     Route: 048
     Dates: start: 20150709
  83. DOMPERIDONE [Concomitant]
     Active Substance: DOMPERIDONE
     Dosage: 30 MG, QD (PHARMACEUTICAL DOSE FORM: 245)
     Route: 048
     Dates: start: 20190709
  84. HYDROCORTISONE [Concomitant]
     Active Substance: HYDROCORTISONE
     Indication: Product used for unknown indication
     Dosage: 100 MG, 1X; IN TOTAL
     Route: 042
     Dates: start: 20150709, end: 20150709
  85. HYDROCORTISONE [Concomitant]
     Active Substance: HYDROCORTISONE
     Dosage: 100 MG, QD
     Route: 041
     Dates: start: 20150709, end: 20150709
  86. METFORMIN [Concomitant]
     Active Substance: METFORMIN HYDROCHLORIDE
     Indication: Diabetes mellitus
     Dosage: 2 GRAM, QD (PHARMACEUTICAL DOSE FORM: 245)
     Route: 048
  87. METFORMIN [Concomitant]
     Active Substance: METFORMIN HYDROCHLORIDE
     Dosage: 1 GRAM, QD (PHARMACEUTICAL DOSE FORM: 245)
     Route: 048
  88. TRAMADOL [Concomitant]
     Active Substance: TRAMADOL
     Indication: Pain
     Dosage: 100 MG, QD (PHARMACEUTICAL DOSE FORM: 245)
     Route: 048
  89. TRAMADOL [Concomitant]
     Active Substance: TRAMADOL
     Dosage: 50 MG, QD (PHARMACEUTICAL DOSE FORM: 245)
     Route: 048
  90. IMODIUM [Concomitant]
     Active Substance: LOPERAMIDE HYDROCHLORIDE
     Indication: Diarrhoea
     Dosage: MG, PRN; AS NECESSARY
     Route: 048
  91. CODEINE PHOSPHATE [Concomitant]
     Active Substance: CODEINE PHOSPHATE
     Indication: Product used for unknown indication
     Dosage: 500 MILLIGRAM, QD (PHARMACEUTICAL DOSE FORM: 245)
     Route: 048
  92. CODEINE PHOSPHATE [Concomitant]
     Active Substance: CODEINE PHOSPHATE
     Dosage: UNK
     Route: 065
  93. CODEINE PHOSPHATE [Concomitant]
     Active Substance: CODEINE PHOSPHATE
     Dosage: 2000 MG, QD
     Route: 048

REACTIONS (10)
  - Chest pain [Recovered/Resolved]
  - Swelling [Not Recovered/Not Resolved]
  - Mucosal inflammation [Recovered/Resolved]
  - Neuropathy peripheral [Recovered/Resolved]
  - Febrile neutropenia [Recovered/Resolved]
  - Diarrhoea [Recovered/Resolved]
  - Fatigue [Recovered/Resolved]
  - Nausea [Not Recovered/Not Resolved]
  - Vomiting [Not Recovered/Not Resolved]
  - Bone pain [Not Recovered/Not Resolved]

NARRATIVE: CASE EVENT DATE: 20150908
